FAERS Safety Report 20610323 (Version 1)
Quarter: 2022Q1

REPORT INFORMATION
  Report Type: Spontaneous
  Country: US (occurrence: None)
  Receive Date: 20220318
  Receipt Date: 20220318
  Transmission Date: 20220423
  Serious: Yes (Other)
  Sender: FDA-Public Use
  Company Number: 2022A112113

PATIENT
  Age: 24391 Day
  Sex: Female

DRUGS (2)
  1. CALQUENCE [Suspect]
     Active Substance: ACALABRUTINIB
     Indication: B-cell small lymphocytic lymphoma
     Route: 048
     Dates: start: 202011
  2. EVUSHELD [Concomitant]
     Active Substance: CILGAVIMAB\TIXAGEVIMAB
     Indication: Lymphocytic lymphoma
     Route: 030
     Dates: start: 20220217

REACTIONS (12)
  - Ulcer haemorrhage [Recovered/Resolved]
  - Neck injury [Recovered/Resolved]
  - Lymphadenopathy [Unknown]
  - Gait disturbance [Unknown]
  - Groin pain [Recovered/Resolved]
  - Hypersensitivity [Unknown]
  - Rash [Unknown]
  - Haemorrhage [Unknown]
  - Blood loss anaemia [Unknown]
  - Haematemesis [Unknown]
  - Haematochezia [Unknown]
  - Faeces discoloured [Unknown]

NARRATIVE: CASE EVENT DATE: 20211106
